FAERS Safety Report 11588956 (Version 1)
Quarter: 2015Q4

REPORT INFORMATION
  Report Type: Spontaneous
  Country: US (occurrence: None)
  Receive Date: 20151001
  Receipt Date: 20151001
  Transmission Date: 20160304
  Serious: Yes (Hospitalization)
  Sender: FDA-Public Use
  Company Number: None

PATIENT
  Age: 68 Year
  Sex: Male
  Weight: 98.6 kg

DRUGS (1)
  1. METOPROLOL [Suspect]
     Active Substance: METOPROLOL
     Indication: HYPERTENSION
     Route: 048
     Dates: start: 20150511, end: 20150530

REACTIONS (4)
  - Sinus node dysfunction [None]
  - Oedema [None]
  - Hypothyroidism [None]
  - Bradycardia [None]

NARRATIVE: CASE EVENT DATE: 20150530
